FAERS Safety Report 16379333 (Version 1)
Quarter: 2019Q2

REPORT INFORMATION
  Report Type: Spontaneous
  Country: JP (occurrence: JP)
  Receive Date: 20190531
  Receipt Date: 20190531
  Transmission Date: 20190711
  Serious: Yes (Other)
  Sender: FDA-Public Use
  Company Number: PHJP2019JP006054

PATIENT
  Age: 76 Year
  Sex: Male

DRUGS (1)
  1. PAZOPANIB [Suspect]
     Active Substance: PAZOPANIB
     Indication: RENAL CELL CARCINOMA RECURRENT
     Dosage: UNK
     Route: 048

REACTIONS (3)
  - Hepatic enzyme increased [Unknown]
  - Cholestasis [Unknown]
  - Jaundice [Unknown]
